FAERS Safety Report 9795096 (Version 1)
Quarter: 2014Q1

REPORT INFORMATION
  Report Type: Report from Study
  Country: US (occurrence: US)
  Receive Date: 20140103
  Receipt Date: 20140103
  Transmission Date: 20141002
  Serious: Yes (Hospitalization)
  Sender: FDA-Public Use
  Company Number: US-ROCHE-1328099

PATIENT
  Age: 72 Year
  Sex: Male

DRUGS (12)
  1. XELODA [Suspect]
     Indication: PANCREATIC CARCINOMA
     Dosage: 02/FEB/2012
     Route: 065
     Dates: start: 201201
  2. XELODA [Suspect]
     Indication: HEPATIC CANCER
  3. AVASTIN [Suspect]
     Indication: PANCREATIC CARCINOMA
     Dosage: 01/MAR/2012, 20/MAR/2012
     Route: 065
     Dates: start: 201202
  4. AVASTIN [Suspect]
     Indication: HEPATIC CANCER
  5. ELOXATIN [Concomitant]
     Dosage: 08/MAR/2012
     Route: 065
     Dates: start: 20120202
  6. 5-FU [Concomitant]
     Route: 065
     Dates: start: 201202
  7. IMODIUM [Concomitant]
  8. TINCTURE OF OPIUM [Concomitant]
  9. REMERON [Concomitant]
  10. ABRAXANE [Concomitant]
     Dosage: 01/MAR/2012, 08/MAR/2012
     Route: 065
     Dates: start: 201202
  11. NEULASTA [Concomitant]
     Dosage: 08/MAR/2012
     Route: 065
  12. LEUCOVORIN [Concomitant]
     Dosage: 01/MAR/2012, 08/MAR/2012
     Route: 065
     Dates: start: 201202

REACTIONS (10)
  - Dehydration [Unknown]
  - Nausea [Unknown]
  - Weight decreased [Unknown]
  - Mental status changes [Unknown]
  - Diarrhoea [Recovered/Resolved]
  - Electrolyte imbalance [Unknown]
  - Blood glucose decreased [Unknown]
  - Pain [Unknown]
  - Decreased appetite [Unknown]
  - Cachexia [Unknown]
